FAERS Safety Report 25699622 (Version 1)
Quarter: 2025Q3

REPORT INFORMATION
  Report Type: Spontaneous
  Country: CH (occurrence: CH)
  Receive Date: 20250819
  Receipt Date: 20250819
  Transmission Date: 20251021
  Serious: Yes (Death, Other)
  Sender: AUROBINDO
  Company Number: CH-AUROBINDO-AUR-APL-2025-041696

PATIENT
  Age: 63 Year
  Sex: Male

DRUGS (1)
  1. BELEODAQ [Suspect]
     Active Substance: BELINOSTAT
     Indication: Product used for unknown indication
     Route: 065

REACTIONS (1)
  - Disease progression [Fatal]
